FAERS Safety Report 24886098 (Version 2)
Quarter: 2025Q1

REPORT INFORMATION
  Report Type: Spontaneous
  Country: JP (occurrence: JP)
  Receive Date: 20250125
  Receipt Date: 20250228
  Transmission Date: 20250409
  Serious: Yes (Other)
  Sender: AMGEN
  Company Number: JP-AMGEN-JPNSP2025011607

PATIENT
  Age: 69 Year
  Sex: Female

DRUGS (2)
  1. EVENITY [Suspect]
     Active Substance: ROMOSOZUMAB-AQQG
     Indication: Osteoporosis
     Dosage: 105 MILLIGRAM, QMO
     Route: 058
     Dates: start: 20231026
  2. EVENITY [Suspect]
     Active Substance: ROMOSOZUMAB-AQQG
     Dosage: 105 MILLIGRAM, QMO
     Route: 058
     Dates: end: 20240822

REACTIONS (3)
  - Shunt infection [Unknown]
  - Physical deconditioning [Unknown]
  - Off label use [Unknown]

NARRATIVE: CASE EVENT DATE: 20231026
